FAERS Safety Report 7829068-7 (Version None)
Quarter: 2011Q4

REPORT INFORMATION
  Report Type: 
  Country: None (occurrence: None)
  Receive Date: 20111020
  Receipt Date: 20111017
  Transmission Date: 20120403
  Serious: No
  Sender: FDA-Public Use
  Company Number: US-TEVA-305773USA

PATIENT
  Sex: Female

DRUGS (5)
  1. PRILOSEC [Concomitant]
     Indication: GASTRIC DISORDER
     Route: 048
  2. PLAN B ONE-STEP [Suspect]
     Indication: POST COITAL CONTRACEPTION
     Dosage: 1.5 MILLIGRAM;
     Route: 048
     Dates: start: 20111015, end: 20111015
  3. SOMA [Concomitant]
     Indication: FIBROMYALGIA
     Route: 048
  4. ULTRAM [Concomitant]
     Indication: FIBROMYALGIA
     Route: 048
  5. MOTRIN [Concomitant]
     Indication: PAIN
     Route: 048

REACTIONS (2)
  - ABDOMINAL PAIN [None]
  - BACK PAIN [None]
